FAERS Safety Report 6206344-5 (Version None)
Quarter: 2009Q2

REPORT INFORMATION
  Report Type: 
  Country: None (occurrence: None)
  Receive Date: 20090528
  Receipt Date: 20090522
  Transmission Date: 20091009
  Serious: Yes (Hospitalization, Other)
  Sender: FDA-Public Use
  Company Number: PHEH2009US04582

PATIENT
  Sex: Male
  Weight: 78.2 kg

DRUGS (6)
  1. RECLAST [Suspect]
     Indication: OSTEOPOROSIS
     Dosage: 5 MG ONCE
     Route: 042
     Dates: start: 20090313, end: 20090313
  2. ACE INHIBITOR NOS [Concomitant]
     Dosage: UNK
     Dates: end: 20090301
  3. COZAAR [Concomitant]
     Dosage: UNK
     Dates: end: 20090301
  4. VITAMIN D3 [Concomitant]
  5. IMMUNOSUPPRESSANTS [Concomitant]
  6. CALCIUM [Concomitant]

REACTIONS (14)
  - BLOOD ALBUMIN DECREASED [None]
  - BLOOD CALCIUM DECREASED [None]
  - BLOOD GLUCOSE INCREASED [None]
  - BLOOD POTASSIUM DECREASED [None]
  - BLOOD SODIUM DECREASED [None]
  - BRAIN NATRIURETIC PEPTIDE INCREASED [None]
  - CHILLS [None]
  - COUGH [None]
  - FATIGUE [None]
  - IRON BINDING CAPACITY TOTAL DECREASED [None]
  - ORTHOPNOEA [None]
  - PULMONARY CONGESTION [None]
  - RENAL FAILURE ACUTE [None]
  - TRANSFERRIN DECREASED [None]
